FAERS Safety Report 26122155 (Version 1)
Quarter: 2025Q4

REPORT INFORMATION
  Report Type: Spontaneous
  Country: CN (occurrence: CN)
  Receive Date: 20251204
  Receipt Date: 20251204
  Transmission Date: 20260118
  Serious: Yes (Hospitalization)
  Sender: PFIZER
  Company Number: CN-PFIZER INC-PV202500140127

PATIENT
  Age: 67 Year
  Sex: Male
  Weight: 70 kg

DRUGS (2)
  1. LINEZOLID [Suspect]
     Active Substance: LINEZOLID
     Indication: Chronic obstructive pulmonary disease
     Dosage: 0.6 G, 1X/DAY
     Dates: start: 20251117, end: 20251118
  2. LINEZOLID [Suspect]
     Active Substance: LINEZOLID
     Indication: Chronic obstructive pulmonary disease
     Dosage: 0.6 G, 1X/DAY
     Route: 041
     Dates: start: 20251117, end: 20251118

REACTIONS (3)
  - Drug-induced liver injury [Recovering/Resolving]
  - Off label use [Unknown]
  - Off label use [Unknown]

NARRATIVE: CASE EVENT DATE: 20251117
